FAERS Safety Report 7622015-2 (Version None)
Quarter: 2011Q3

REPORT INFORMATION
  Report Type: 
  Country: None (occurrence: None)
  Receive Date: 20110720
  Receipt Date: 20101217
  Transmission Date: 20111222
  Serious: Yes (Hospitalization)
  Sender: FDA-Public Use
  Company Number: US-BAYER-2010-006738

PATIENT
  Sex: Male

DRUGS (1)
  1. AVELOX [Suspect]
     Indication: BRONCHITIS
     Dosage: 400 MG, UNK
     Route: 048

REACTIONS (4)
  - LIP SWELLING [None]
  - SWOLLEN TONGUE [None]
  - HYPERSENSITIVITY [None]
  - BLOOD PRESSURE DECREASED [None]
